FAERS Safety Report 14153581 (Version 2)
Quarter: 2018Q1

REPORT INFORMATION
  Report Type: Spontaneous
  Country: US (occurrence: US)
  Receive Date: 20171102
  Receipt Date: 20180201
  Transmission Date: 20180508
  Serious: No
  Sender: FDA-Public Use
  Company Number: US-SA-2017SA149065

PATIENT
  Age: 77 Year
  Sex: Female

DRUGS (26)
  1. CLOPIDOGREL [Concomitant]
     Active Substance: CLOPIDOGREL BISULFATE
     Dosage: STRENGTH: 75 MG
     Route: 065
  2. PERCOCET [Concomitant]
     Active Substance: ACETAMINOPHEN\OXYCODONE HYDROCHLORIDE
     Dosage: STRENGTH: 10-325 MG
     Route: 065
  3. VICTOZA [Concomitant]
     Active Substance: LIRAGLUTIDE
     Dosage: STRENGTH: 18 MG/3 ML
     Route: 065
  4. LIVALO [Concomitant]
     Active Substance: PITAVASTATIN CALCIUM
     Route: 065
  5. PRALUENT [Suspect]
     Active Substance: ALIROCUMAB
     Indication: ARTERIOSCLEROSIS
     Route: 058
     Dates: start: 201703
  6. ALIROCUMAB PREFILLED PEN [Suspect]
     Active Substance: ALIROCUMAB
     Indication: ARTERIOSCLEROSIS
     Dates: start: 201703
  7. VALSARTAN. [Concomitant]
     Active Substance: VALSARTAN
     Dosage: STRENGTH: 320 MG
     Route: 065
  8. PRALUENT [Suspect]
     Active Substance: ALIROCUMAB
     Indication: ARTERIOSCLEROSIS
     Route: 058
     Dates: start: 201703
  9. IRON [Concomitant]
     Active Substance: IRON
     Dosage: STRENGTH: 90 (18 FMG)
     Route: 065
  10. AMLODIPINE [Concomitant]
     Active Substance: AMLODIPINE BESYLATE
     Dosage: STRENGTH: 10 MG
     Route: 065
  11. OMEPRAZOLE. [Concomitant]
     Active Substance: OMEPRAZOLE
     Dosage: STRENGTH: 20 MG
     Route: 065
  12. PERCOCET [Concomitant]
     Active Substance: ACETAMINOPHEN\OXYCODONE HYDROCHLORIDE
     Dosage: STRENGTH: 5-325 MG
     Route: 065
  13. PROZAC [Concomitant]
     Active Substance: FLUOXETINE HYDROCHLORIDE
     Route: 065
  14. ASPIRIN. [Concomitant]
     Active Substance: ASPIRIN
     Dosage: CHW 81MG
  15. MAGNESIUM OXIDE. [Concomitant]
     Active Substance: MAGNESIUM OXIDE
     Dosage: STRENGTH: 400 MG
     Route: 065
  16. FENOFIBRATE. [Concomitant]
     Active Substance: FENOFIBRATE
     Dosage: STRENGTH: 145 MG
     Route: 065
  17. VITAMIN D [Concomitant]
     Active Substance: CHOLECALCIFEROL
     Dosage: STRENGTH: 50,000 UNT
     Route: 065
  18. A-HYDROCORT [Concomitant]
     Active Substance: HYDROCORTISONE SODIUM SUCCINATE
     Dosage: STRENGTH: 2%
     Route: 065
  19. METFORMIN [Concomitant]
     Active Substance: METFORMIN HYDROCHLORIDE
     Dosage: STRENGTH: 500 MG
     Route: 065
  20. SOLOSTAR [Concomitant]
     Active Substance: DEVICE
  21. RANITIDINE. [Concomitant]
     Active Substance: RANITIDINE
     Dosage: STRENGTH: 300 MG
     Route: 065
  22. ALIROCUMAB PREFILLED PEN [Suspect]
     Active Substance: ALIROCUMAB
     Indication: ARTERIOSCLEROSIS
     Dates: start: 201703
  23. VITAMIN B1 [Concomitant]
     Active Substance: THIAMINE HYDROCHLORIDE
     Dosage: STRENGTH: 100 MG
     Route: 065
  24. DULOXETINE. [Concomitant]
     Active Substance: DULOXETINE
     Dosage: STRENGTH: 60 MG
     Route: 065
  25. LANTUS SOLOSTAR [Concomitant]
     Active Substance: INSULIN GLARGINE
  26. LOVAZA [Concomitant]
     Active Substance: OMEGA-3-ACID ETHYL ESTERS
     Dosage: STRENGTH: 1 GM
     Route: 065

REACTIONS (2)
  - Myopathy [Unknown]
  - Injection site bruising [Not Recovered/Not Resolved]
